FAERS Safety Report 11627948 (Version 1)
Quarter: 2015Q4

REPORT INFORMATION
  Report Type: Other
  Country: GB (occurrence: GB)
  Receive Date: 20151014
  Receipt Date: 20151014
  Transmission Date: 20160304
  Serious: Yes (Hospitalization)
  Sender: FDA-Public Use
  Company Number: GB-GLENMARK PHARMACEUTICALS INC, USA.-2014GMK012422

PATIENT
  Age: 91 Year
  Sex: Female

DRUGS (11)
  1. GABAPENTIN. [Suspect]
     Active Substance: GABAPENTIN
     Dosage: 500 MG, QD
     Route: 048
     Dates: start: 20141015, end: 20141021
  2. GABAPENTIN. [Suspect]
     Active Substance: GABAPENTIN
     Dosage: 300 MG, TID
     Route: 048
     Dates: start: 20141105, end: 20141106
  3. CARVEDILOL. [Concomitant]
     Active Substance: CARVEDILOL
     Indication: PRODUCT USED FOR UNKNOWN INDICATION
     Dosage: UNK
  4. FUROSEMIDE. [Concomitant]
     Active Substance: FUROSEMIDE
     Indication: PRODUCT USED FOR UNKNOWN INDICATION
     Dosage: UNK
  5. PARACETAMOL [Concomitant]
     Active Substance: ACETAMINOPHEN
     Indication: PRODUCT USED FOR UNKNOWN INDICATION
     Dosage: UNK
  6. FLUCLOXACILLIN [Suspect]
     Active Substance: FLUCLOXACILLIN
     Dosage: 1 G, QOD
     Route: 048
     Dates: start: 20141010, end: 20141017
  7. WARFARIN [Concomitant]
     Active Substance: WARFARIN
     Indication: PRODUCT USED FOR UNKNOWN INDICATION
     Dosage: UNK
  8. FLUCLOXACILLIN [Suspect]
     Active Substance: FLUCLOXACILLIN
     Indication: INFECTED SKIN ULCER
     Dosage: 500 MG, QOD
     Route: 048
     Dates: start: 20140929, end: 20141005
  9. ADCAL D3 [Concomitant]
     Active Substance: CALCIUM CARBONATE\CHOLECALCIFEROL
     Indication: PRODUCT USED FOR UNKNOWN INDICATION
     Dosage: UNK
  10. GABAPENTIN. [Suspect]
     Active Substance: GABAPENTIN
     Dosage: 700 MG, QD
     Route: 048
     Dates: start: 20141022, end: 20141104
  11. GABAPENTIN. [Suspect]
     Active Substance: GABAPENTIN
     Indication: PAIN
     Dosage: 300 MG, OD
     Route: 048
     Dates: end: 20141014

REACTIONS (2)
  - Liver function test abnormal [Not Recovered/Not Resolved]
  - Cholecystitis [Unknown]

NARRATIVE: CASE EVENT DATE: 20141105
